FAERS Safety Report 4864274-5 (Version None)
Quarter: 2005Q4

REPORT INFORMATION
  Report Type: 
  Country: None (occurrence: None)
  Receive Date: 20051222
  Receipt Date: 20051212
  Transmission Date: 20060501
  Serious: Yes (Life-Threatening)
  Sender: FDA-Public Use
  Company Number: ES-JNJFOC-20051202314

PATIENT
  Age: 67 Year
  Sex: Female

DRUGS (3)
  1. DUROGESIC MATRIX [Suspect]
     Indication: DRUG USE FOR UNKNOWN INDICATION
     Route: 062
  2. SEVREDOL [Suspect]
     Indication: DRUG USE FOR UNKNOWN INDICATION
     Route: 048
  3. ACTIQ [Suspect]
     Indication: DRUG USE FOR UNKNOWN INDICATION
     Route: 048

REACTIONS (1)
  - NEUROPATHY [None]
